FAERS Safety Report 6916568-7 (Version None)
Quarter: 2010Q3

REPORT INFORMATION
  Report Type: 
  Country: None (occurrence: None)
  Receive Date: 20100810
  Receipt Date: 20100730
  Transmission Date: 20110219
  Serious: Yes (Death)
  Sender: FDA-Public Use
  Company Number: CN-BAXTER-2010BH020493

PATIENT
  Sex: Female

DRUGS (6)
  1. FORANE [Suspect]
     Indication: GENERAL ANAESTHESIA
     Route: 055
  2. MIDAZOLAM HYDROCHLORIDE [Suspect]
     Indication: GENERAL ANAESTHESIA
     Route: 065
  3. REMIFENTANIL [Suspect]
     Indication: GENERAL ANAESTHESIA
     Route: 065
  4. PROPOFOL [Suspect]
     Indication: GENERAL ANAESTHESIA
     Route: 065
  5. VECURONIUM BROMIDE WATSON [Suspect]
     Indication: GENERAL ANAESTHESIA
     Route: 065
  6. NITROUS OXIDE [Suspect]
     Indication: GENERAL ANAESTHESIA
     Route: 055

REACTIONS (1)
  - HYPERTHERMIA MALIGNANT [None]
